FAERS Safety Report 5007657-5 (Version None)
Quarter: 2006Q2

REPORT INFORMATION
  Report Type: 
  Country: None (occurrence: None)
  Receive Date: 20060522
  Receipt Date: 20060515
  Transmission Date: 20061013
  Serious: Yes (Life-Threatening, Hospitalization)
  Sender: FDA-Public Use
  Company Number: MX-AVENTIS-200615270GDDC

PATIENT
  Age: 57 Year
  Sex: Female

DRUGS (5)
  1. ARAVA [Suspect]
     Indication: RHEUMATOID ARTHRITIS
     Route: 048
     Dates: start: 20060317, end: 20060319
  2. ARAVA [Suspect]
     Route: 048
     Dates: start: 20060320, end: 20060511
  3. METHOTREXATE [Suspect]
     Indication: RHEUMATOID ARTHRITIS
     Route: 048
     Dates: start: 20051001, end: 20060511
  4. INDOCID [Concomitant]
     Indication: RHEUMATOID ARTHRITIS
     Route: 048
     Dates: start: 20051001, end: 20060511
  5. PLAQUENIL [Concomitant]
     Dosage: DOSE: UNK
     Dates: start: 20060212, end: 20060317

REACTIONS (7)
  - ABDOMINAL PAIN UPPER [None]
  - FATIGUE [None]
  - HEPATITIS [None]
  - HEPATITIS VIRAL [None]
  - JAUNDICE [None]
  - PRURITUS [None]
  - TRANSAMINASES INCREASED [None]
